FAERS Safety Report 4350521-5 (Version None)
Quarter: 2004Q2

REPORT INFORMATION
  Report Type: 
  Country: None (occurrence: None)
  Receive Date: 20040429
  Receipt Date: 20040429
  Transmission Date: 20050107
  Serious: Yes (Hospitalization)
  Sender: FDA-Public Use
  Company Number: None

PATIENT
  Sex: Male
  Weight: 71.5 kg

DRUGS (3)
  1. WARFARIN SODIUM [Suspect]
     Indication: CEREBROVASCULAR ACCIDENT
     Dosage: 3MG QD 1.5 MG ORAL
     Route: 048
     Dates: start: 20030701, end: 20040420
  2. WARFARIN SODIUM [Suspect]
     Indication: THROMBOSIS
     Dosage: 3MG QD 1.5 MG ORAL
     Route: 048
     Dates: start: 20030701, end: 20040420
  3. BEXTRA [Suspect]
     Indication: OSTEOARTHRITIS
     Dosage: ORAL
     Route: 048
     Dates: start: 20030901, end: 20040420

REACTIONS (10)
  - BARRETT'S OESOPHAGUS [None]
  - DIARRHOEA [None]
  - DUODENAL POLYP [None]
  - GASTRITIS EROSIVE [None]
  - HAEMATEMESIS [None]
  - HIATUS HERNIA [None]
  - IATROGENIC INJURY [None]
  - MEDICAL DEVICE COMPLICATION [None]
  - OESOPHAGITIS [None]
  - TELANGIECTASIA [None]
